FAERS Safety Report 8092908-3 (Version None)
Quarter: 2012Q1

REPORT INFORMATION
  Report Type: 
  Country: None (occurrence: None)
  Receive Date: 20120128
  Receipt Date: 20110727
  Transmission Date: 20120608
  Serious: No
  Sender: FDA-Public Use
  Company Number: US-ABBOTT-11P-163-0841924-00

PATIENT
  Sex: Female
  Weight: 52.21 kg

DRUGS (7)
  1. HUMIRA [Suspect]
     Indication: CROHN'S DISEASE
     Route: 058
     Dates: start: 20090101, end: 20110401
  2. TRAMADOL HCL [Concomitant]
     Indication: CROHN'S DISEASE
  3. LEVOTHYROXINE SODIUM [Concomitant]
     Indication: HYPOTHYROIDISM
  4. LAMICTAL [Concomitant]
     Indication: BIPOLAR DISORDER
  5. TRAZODONE HCL [Concomitant]
     Indication: ANXIETY
  6. HUMIRA [Suspect]
     Route: 058
     Dates: start: 20110401
  7. CLONAZEPAM [Concomitant]
     Indication: PANIC ATTACK

REACTIONS (4)
  - BUTTERFLY RASH [None]
  - HEADACHE [None]
  - ABDOMINAL PAIN [None]
  - DIARRHOEA [None]
